FAERS Safety Report 8779059 (Version 1)
Quarter: 2012Q4

REPORT INFORMATION
  Report Type: 
  Country: GB (occurrence: GB)
  Receive Date: 20120912
  Receipt Date: 20120912
  Transmission Date: 20130627
  Serious: Yes (Hospitalization)
  Sender: FDA-Public Use
  Company Number: GB-PFIZER INC-2012222328

PATIENT
  Age: 58 Year
  Sex: Female

DRUGS (5)
  1. LYRICA [Suspect]
     Indication: COMPLEX REGIONAL PAIN SYNDROME
     Dosage: 100 mg, 2x/day
     Route: 048
     Dates: start: 20120705, end: 20120729
  2. GABAPENTIN [Concomitant]
     Indication: PAIN
     Route: 048
     Dates: start: 20120614, end: 20120705
  3. AMITRIPTYLINE [Concomitant]
     Indication: PAIN
     Dosage: 10-30mg at night
     Route: 048
     Dates: start: 20120530, end: 20120614
  4. BECONASE [Concomitant]
     Indication: RHINITIS
     Route: 045
     Dates: start: 20120404, end: 20120504
  5. CLARITHROMYCIN [Concomitant]
     Indication: LOWER RESPIRATORY TRACT INFECTION
     Route: 048
     Dates: start: 20120302, end: 20120309

REACTIONS (1)
  - Lacunar infarction [Recovering/Resolving]
